FAERS Safety Report 8810114 (Version 2)
Quarter: 2012Q4

REPORT INFORMATION
  Report Type: 
  Country: US (occurrence: US)
  Receive Date: 20120926
  Receipt Date: 20121010
  Transmission Date: 20130627
  Serious: Yes (Other)
  Sender: FDA-Public Use
  Company Number: US-ROCHE-1136428

PATIENT
  Age: 67 Year
  Sex: Male

DRUGS (14)
  1. LUCENTIS [Suspect]
     Indication: AGE-RELATED MACULAR DEGENERATION
     Route: 065
     Dates: start: 20120505, end: 20120917
  2. HYDROXYCHLOROQUINE [Concomitant]
     Route: 065
  3. FLOMAX [Concomitant]
     Route: 065
  4. HCTZ [Concomitant]
     Route: 065
  5. ZEAXANTHIN [Concomitant]
  6. TYLENOL [Concomitant]
     Route: 065
  7. ASPIRIN [Concomitant]
     Dosage: every other day
     Route: 065
  8. DEXILANT [Concomitant]
     Route: 065
  9. NASONEX [Concomitant]
  10. POTASSIUM CITRATE [Concomitant]
     Route: 065
  11. ZYMAXID [Concomitant]
     Route: 065
  12. PREDNISOLONE ACETATE [Concomitant]
     Route: 047
  13. AVELOX [Concomitant]
     Route: 065
  14. NORVASC [Concomitant]
     Indication: GASTROOESOPHAGEAL REFLUX DISEASE

REACTIONS (1)
  - Endophthalmitis [Recovering/Resolving]
